FAERS Safety Report 4440622-5 (Version None)
Quarter: 2004Q3

REPORT INFORMATION
  Report Type: 
  Country: None (occurrence: None)
  Receive Date: 20040901
  Receipt Date: 20040901
  Transmission Date: 20050211
  Serious: Yes (Hospitalization)
  Sender: FDA-Public Use
  Company Number: None

PATIENT
  Sex: Female
  Weight: 38.5557 kg

DRUGS (13)
  1. ZELNORM [Suspect]
     Dosage: 6 MG PO BID [PRIOR TO ADMISSION]
     Route: 048
  2. LAMICTAL [Concomitant]
  3. ZONEGRAN [Concomitant]
  4. MYSOLINE [Concomitant]
  5. NEXIUM [Concomitant]
  6. LACTULOSE [Concomitant]
  7. EVISTA [Concomitant]
  8. OS-CAL [Concomitant]
  9. VIT C [Concomitant]
  10. PERI-COLACE [Concomitant]
  11. ZINC SULFATE [Concomitant]
  12. DRISDOL [Concomitant]
  13. DULCOLAX [Concomitant]

REACTIONS (4)
  - ABDOMINAL PAIN [None]
  - DIARRHOEA [None]
  - NAUSEA [None]
  - VOMITING [None]
